FAERS Safety Report 21208429 (Version 1)
Quarter: 2022Q3

REPORT INFORMATION
  Report Type: Spontaneous
  Country: NO (occurrence: NO)
  Receive Date: 20220812
  Receipt Date: 20220812
  Transmission Date: 20221027
  Serious: Yes (Hospitalization)
  Sender: FDA-Public Use
  Company Number: NO-BIOVITRUM-2022NO09581

PATIENT
  Age: 8 Year
  Sex: Male

DRUGS (1)
  1. KINERET [Suspect]
     Active Substance: ANAKINRA
     Indication: Still^s disease
     Dosage: 100 MG/SYRINGE
     Dates: start: 20220321, end: 20220406

REACTIONS (5)
  - Skin abrasion [Recovered/Resolved]
  - Dermatitis [Recovered/Resolved]
  - Transaminases increased [Recovered/Resolved]
  - Injection site dermatitis [Recovered/Resolved]
  - Pruritus [Recovered/Resolved]

NARRATIVE: CASE EVENT DATE: 20220324
